FAERS Safety Report 5780173-9 (Version None)
Quarter: 2008Q2

REPORT INFORMATION
  Report Type: 
  Country: None (occurrence: None)
  Receive Date: 20080620
  Receipt Date: 20080612
  Transmission Date: 20081010
  Serious: Yes (Death, Hospitalization)
  Sender: FDA-Public Use
  Company Number: GB-ASTRAZENECA-2008GB01121

PATIENT
  Age: 48 Year
  Sex: Male

DRUGS (4)
  1. QUETIAPINE FUMARATE [Suspect]
     Route: 048
  2. ATORVASTATIN [Suspect]
  3. SERTRALINE [Suspect]
  4. UNSPECIFIED ANTI-SCHIZOPHRENIC DRUG [Suspect]

REACTIONS (2)
  - HEPATIC FAILURE [None]
  - HEPATIC STEATOSIS [None]
